FAERS Safety Report 8020191-3 (Version None)
Quarter: 2012Q1

REPORT INFORMATION
  Report Type: 
  Country: None (occurrence: None)
  Receive Date: 20120103
  Receipt Date: 20120102
  Transmission Date: 20120608
  Serious: Yes (Hospitalization)
  Sender: FDA-Public Use
  Company Number: DE-ROCHE-1026672

PATIENT
  Sex: Female
  Weight: 61 kg

DRUGS (4)
  1. NIFEDIPINE [Concomitant]
     Indication: HYPERTENSION
     Route: 048
  2. MABTHERA [Suspect]
     Indication: RHEUMATOID ARTHRITIS
  3. ALENDRONATE SODIUM [Concomitant]
     Indication: OSTEOPOROSIS
     Route: 048
  4. CALCIUM ACETATE [Concomitant]
     Indication: OSTEOPOROSIS
     Route: 048

REACTIONS (1)
  - LARGE INTESTINE PERFORATION [None]
